FAERS Safety Report 24435115 (Version 6)
Quarter: 2024Q4

REPORT INFORMATION
  Report Type: Spontaneous
  Country: JP (occurrence: JP)
  Receive Date: 20241014
  Receipt Date: 20241202
  Transmission Date: 20250114
  Serious: Yes (Life-Threatening, Hospitalization, Other)
  Sender: JOHNSON AND JOHNSON
  Company Number: JP-JNJFOC-20241037349

PATIENT
  Age: 60 Year
  Sex: Male

DRUGS (14)
  1. RILPIVIRINE [Suspect]
     Active Substance: RILPIVIRINE
     Indication: HIV infection
     Route: 030
     Dates: start: 20240319, end: 20240319
  2. RILPIVIRINE [Suspect]
     Active Substance: RILPIVIRINE
     Dosage: DOSE UNKNOWN
     Route: 030
     Dates: start: 20240416, end: 20240416
  3. RILPIVIRINE [Suspect]
     Active Substance: RILPIVIRINE
     Dosage: DOSE UNKNOWN
     Route: 030
     Dates: start: 20240611
  4. VOCABRIA [Suspect]
     Active Substance: CABOTEGRAVIR SODIUM
     Indication: HIV infection
     Route: 030
     Dates: start: 20240319, end: 20240319
  5. VOCABRIA [Suspect]
     Active Substance: CABOTEGRAVIR SODIUM
     Dosage: DOSE UNKNOWN
     Route: 030
     Dates: start: 20240416, end: 20240416
  6. VOCABRIA [Suspect]
     Active Substance: CABOTEGRAVIR SODIUM
     Dosage: DOSE UNKNOWN
     Route: 030
     Dates: start: 20240611
  7. MOUNJARO [Concomitant]
     Active Substance: TIRZEPATIDE
     Indication: Diabetes mellitus
     Route: 058
     Dates: start: 20230801
  8. MOUNJARO [Concomitant]
     Active Substance: TIRZEPATIDE
     Route: 058
  9. OLMESARTAN [Concomitant]
     Active Substance: OLMESARTAN
     Indication: Hypertension
     Dosage: SINCE BEFORE 2018
     Route: 048
  10. OLMESARTAN [Concomitant]
     Active Substance: OLMESARTAN
     Indication: Chronic kidney disease
  11. CILNIDIPINE [Concomitant]
     Active Substance: CILNIDIPINE
     Indication: Hypertension
     Dosage: SINCE BEFORE 2018
     Route: 048
  12. JARDIANCE [Concomitant]
     Active Substance: EMPAGLIFLOZIN
     Indication: Diabetes mellitus
     Dosage: SINCE BEFORE 2018
     Route: 048
  13. METGLUCO [Concomitant]
     Active Substance: METFORMIN HYDROCHLORIDE
     Indication: Diabetes mellitus
     Dosage: SINCE BEFORE 2018
     Route: 048
  14. CRESTOR [Concomitant]
     Active Substance: ROSUVASTATIN CALCIUM
     Indication: Dyslipidaemia
     Dosage: SINCE BEFORE 2018
     Route: 048

REACTIONS (1)
  - Acute myocardial infarction [Recovering/Resolving]

NARRATIVE: CASE EVENT DATE: 20240614
